FAERS Safety Report 8673160 (Version 4)
Quarter: 2012Q4

REPORT INFORMATION
  Report Type: 
  Country: US (occurrence: US)
  Receive Date: 20120719
  Receipt Date: 20121012
  Transmission Date: 20130627
  Serious: Yes (Hospitalization, Disabling, Other)
  Sender: FDA-Public Use
  Company Number: US-009507513-1207USA003701

PATIENT
  Sex: Female
  Weight: 97.52 kg

DRUGS (5)
  1. FOSAMAX [Suspect]
     Indication: OSTEOPENIA
     Dosage: 70 mg, UNK
     Route: 048
     Dates: start: 200203
  2. FOSAMAX [Suspect]
     Indication: OSTEOPOROSIS
     Dosage: 10 mg, UNK
     Route: 048
     Dates: end: 200802
  3. ALENDRONATE SODIUM [Suspect]
     Indication: OSTEOPENIA
     Dosage: 10 mg, qd
     Route: 048
     Dates: start: 200802, end: 201010
  4. ALENDRONATE SODIUM [Suspect]
     Indication: OSTEOPENIA
  5. ALENDRONATE SODIUM [Suspect]
     Indication: OSTEOPOROSIS

REACTIONS (41)
  - Femur fracture [Unknown]
  - Foot fracture [Unknown]
  - Low turnover osteopathy [Unknown]
  - Limb operation [Unknown]
  - Multiple fractures [Unknown]
  - Femur fracture [Unknown]
  - Tooth extraction [Unknown]
  - Osteoporosis [Unknown]
  - Stress fracture [Unknown]
  - Fall [Unknown]
  - Impaired healing [Unknown]
  - Blood pressure increased [Unknown]
  - Dental operation [Unknown]
  - Dental operation [Unknown]
  - Eye operation [Unknown]
  - Retinal detachment [Unknown]
  - Pain in extremity [Unknown]
  - Femur fracture [Unknown]
  - Onychomycosis [Unknown]
  - Fall [Unknown]
  - Macular fibrosis [Unknown]
  - Cataract nuclear [Unknown]
  - Amenorrhoea [Unknown]
  - Cervical polyp [Unknown]
  - Haematuria [Unknown]
  - Stress urinary incontinence [Unknown]
  - Hyperlipidaemia [Unknown]
  - Road traffic accident [Unknown]
  - Costochondritis [Unknown]
  - Hyperthyroidism [Unknown]
  - Arthralgia [Unknown]
  - Pain in extremity [Unknown]
  - Trigger finger [Unknown]
  - Nail discolouration [Unknown]
  - Oestrogen deficiency [Unknown]
  - Hypothyroidism [Unknown]
  - Synovial cyst [Unknown]
  - Pain [Unknown]
  - Osteoarthritis [Unknown]
  - Road traffic accident [Unknown]
  - Neck pain [Not Recovered/Not Resolved]
